FAERS Safety Report 15676499 (Version 1)
Quarter: 2018Q4

REPORT INFORMATION
  Report Type: Spontaneous
  Country: AR (occurrence: AR)
  Receive Date: 20181130
  Receipt Date: 20181130
  Transmission Date: 20190205
  Serious: Yes (Other)
  Sender: FDA-Public Use
  Company Number: AR-PFIZER INC-2018486227

PATIENT
  Age: 65 Year
  Sex: Male

DRUGS (2)
  1. AZULFIDINE EN-TABS [Suspect]
     Active Substance: SULFASALAZINE
     Indication: COLITIS ULCERATIVE
     Dosage: UNK UNK, 3X/DAY
  2. AZULFIDINE EN-TABS [Suspect]
     Active Substance: SULFASALAZINE
     Dosage: UNK UNK, 2X/DAY

REACTIONS (3)
  - Liver disorder [Unknown]
  - Intentional product use issue [Unknown]
  - Gastric ulcer [Unknown]
